FAERS Safety Report 5071712-4 (Version None)
Quarter: 2006Q3

REPORT INFORMATION
  Report Type: 
  Country: None (occurrence: None)
  Receive Date: 20060801
  Receipt Date: 20050531
  Transmission Date: 20061208
  Serious: Yes (Other)
  Sender: FDA-Public Use
  Company Number: 2005BH000061

PATIENT
  Age: 78 Year
  Sex: Female
  Weight: 69 kg

DRUGS (18)
  1. PANCURONIUM 2 MG AMPUL (PANCURONIUM) [Suspect]
     Indication: NEUROMUSCULAR BLOCKADE
     Dosage: 12 MG
  2. ROCURONIUM (ROCURONIUM) [Suspect]
     Dosage: 80 MG
  3. MAGNESIUM SULFATE [Suspect]
     Dosage: 2.5 GM
  4. ISOSORBIDE MONONITRATE [Concomitant]
  5. OMEPRAZOLE [Concomitant]
  6. NADOLOL [Concomitant]
  7. DILTIAZEM [Concomitant]
  8. ACETYLSALICYLIC ACID SRT [Concomitant]
  9. NITROGLYCERIN ^DAK^ [Concomitant]
  10. CRYSTALLOID SOLUTION [Concomitant]
  11. PENTASTARCH [Concomitant]
  12. EPINEPHRINE [Concomitant]
  13. MILRINONE [Concomitant]
  14. FUROSEMIDE [Concomitant]
  15. MANNITOL [Concomitant]
  16. APROTININ [Concomitant]
  17. INSULIN [Concomitant]
  18. CALCIUM CHLORIDE [Concomitant]

REACTIONS (3)
  - DRUG INTERACTION POTENTIATION [None]
  - HYPOCALCAEMIA [None]
  - NEUROMUSCULAR BLOCK PROLONGED [None]
